FAERS Safety Report 5485057-1 (Version None)
Quarter: 2007Q4

REPORT INFORMATION
  Report Type: 
  Country: None (occurrence: None)
  Receive Date: 20071015
  Receipt Date: 20071002
  Transmission Date: 20080405
  Serious: Yes (Other)
  Sender: FDA-Public Use
  Company Number: US-ELI_LILLY_AND_COMPANY-US200710000201

PATIENT
  Sex: Male

DRUGS (5)
  1. FORTEO [Suspect]
     Dosage: 20 UG, DAILY (1/D)
     Dates: start: 20070701
  2. TESTOSTERONE [Concomitant]
     Indication: HYPOGONADISM MALE
  3. MULTI-VITAMIN [Concomitant]
  4. PREDNISONE [Concomitant]
     Dosage: 5 MG, UNK
  5. PREVACID [Concomitant]

REACTIONS (1)
  - OSTEONECROSIS [None]
